FAERS Safety Report 23678882 (Version 1)
Quarter: 2024Q1

REPORT INFORMATION
  Report Type: Spontaneous
  Country: US (occurrence: None)
  Receive Date: 20240326
  Receipt Date: 20240326
  Transmission Date: 20240409
  Serious: Yes (Hospitalization, Other)
  Sender: FDA-Public Use
  Company Number: None

PATIENT
  Age: 54 Year
  Sex: Female
  Weight: 112 kg

DRUGS (3)
  1. FREMANEZUMAB [Suspect]
     Active Substance: FREMANEZUMAB
  2. CALCITRIOL [Suspect]
     Active Substance: CALCITRIOL
  3. CALCIUM [Suspect]
     Active Substance: CALCIUM

REACTIONS (2)
  - Acute kidney injury [None]
  - Hypercalcaemia [None]

NARRATIVE: CASE EVENT DATE: 20230414
